FAERS Safety Report 9264478 (Version 1)
Quarter: 2013Q2

REPORT INFORMATION
  Report Type: Report from Study
  Country: DE (occurrence: DE)
  Receive Date: 20130501
  Receipt Date: 20130501
  Transmission Date: 20140414
  Serious: Yes (Death, Other)
  Sender: FDA-Public Use
  Company Number: DE-ROCHE-584107

PATIENT
  Sex: 0

DRUGS (5)
  1. RITUXIMAB [Suspect]
     Indication: LYMPHOMA
     Dosage: GIVEN ON DAY 1 OF EVERY 21 DAYS
     Route: 065
  2. CYCLOPHOSPHAMIDE [Suspect]
     Indication: LYMPHOMA
     Dosage: STANDARD REGIMEN EVERY 21 DAYS
     Route: 065
  3. DOXORUBICIN [Suspect]
     Indication: LYMPHOMA
     Dosage: STANDARD REGIMEN EVERY 21 DAYS
     Route: 065
  4. PREDNISONE [Suspect]
     Indication: LYMPHOMA
     Dosage: STANDARD REGIMEN EVERY 21 DAYS
     Route: 065
  5. VINCRISTINE [Suspect]
     Indication: LYMPHOMA
     Dosage: STANDARD REGIMEN EVERY 21 DAYS
     Route: 065

REACTIONS (9)
  - Sepsis [Fatal]
  - Death [Fatal]
  - Leukopenia [Unknown]
  - Neoplasm malignant [Unknown]
  - Infection [Unknown]
  - Neutropenia [Unknown]
  - Lymphopenia [Unknown]
  - Anaemia [Unknown]
  - Thrombocytopenia [Unknown]
